FAERS Safety Report 5595299-2 (Version None)
Quarter: 2008Q1

REPORT INFORMATION
  Report Type: 
  Country: None (occurrence: None)
  Receive Date: 20080117
  Receipt Date: 20080110
  Transmission Date: 20080703
  Serious: Yes (Hospitalization, Disabling)
  Sender: FDA-Public Use
  Company Number: US-MERCK-0704USA05723

PATIENT
  Age: 60 Year
  Sex: Female
  Weight: 87 kg

DRUGS (1)
  1. FOSAMAX [Suspect]
     Indication: OSTEOPENIA
     Route: 048
     Dates: start: 19990101, end: 20060501

REACTIONS (6)
  - ADVERSE EVENT [None]
  - ANXIETY [None]
  - DEPRESSION [None]
  - INFLAMMATORY BOWEL DISEASE [None]
  - OSTEONECROSIS [None]
  - TOOTH LOSS [None]
